FAERS Safety Report 6414843-6 (Version None)
Quarter: 2009Q4

REPORT INFORMATION
  Report Type: 
  Country: None (occurrence: None)
  Receive Date: 20091026
  Receipt Date: 20081105
  Transmission Date: 20100525
  Serious: No
  Sender: FDA-Public Use
  Company Number: US-ABBOTT-08P-163-0486494-00

PATIENT
  Sex: Female

DRUGS (3)
  1. LUPRON DEPOT [Suspect]
     Indication: ENDOMETRIOSIS
     Dates: start: 20080801
  2. NORETHINDRONE ACETATE [Interacting]
     Indication: DRUG USE FOR UNKNOWN INDICATION
     Dates: start: 20080801
  3. ORAL CONTRACEPTIVE [Concomitant]
     Indication: DRUG USE FOR UNKNOWN INDICATION

REACTIONS (8)
  - DRUG INEFFECTIVE [None]
  - DRUG INTERACTION [None]
  - FEELING JITTERY [None]
  - HOT FLUSH [None]
  - MENORRHAGIA [None]
  - MENSTRUAL DISORDER [None]
  - MUSCLE SPASMS [None]
  - NIGHT SWEATS [None]
